FAERS Safety Report 6646411-5 (Version None)
Quarter: 2010Q1

REPORT INFORMATION
  Report Type: 
  Country: None (occurrence: None)
  Receive Date: 20100323
  Receipt Date: 20100303
  Transmission Date: 20100710
  Serious: Yes (Death, Other)
  Sender: FDA-Public Use
  Company Number: GB-BAYER-201018303GPV

PATIENT
  Age: 51 Year
  Sex: Female

DRUGS (10)
  1. FLUDARABINE PHOSPHATE [Suspect]
     Indication: ACUTE MYELOID LEUKAEMIA
     Dosage: FLAG-IDA REGIMEN
  2. FLUDARABINE PHOSPHATE [Suspect]
     Dosage: CONSOLIDATION FLAG (WITHOUT IDA)
  3. CYTARABINE [Suspect]
     Indication: ACUTE MYELOID LEUKAEMIA
     Dosage: FLAG-IDA REGIMEN
  4. CYTARABINE [Suspect]
     Dosage: CONSOLIDATION FLAG (WITHOUT IDA)
  5. GRANULOCYTE-COLONY STIMULATING FACTOR [Suspect]
     Indication: ACUTE MYELOID LEUKAEMIA
     Dosage: FLAG-IDA REGIMEN
  6. GRANULOCYTE-COLONY STIMULATING FACTOR [Suspect]
     Dosage: CONSOLIDATION FLAG (WITHOUT IDA)
  7. IDARUBICIN HCL [Suspect]
     Indication: ACUTE MYELOID LEUKAEMIA
     Dosage: FLAG-IDA REGIMEN
  8. RED BLOOD CELL TRANSFUSIONS [Concomitant]
     Dosage: MULTIPLE
     Route: 042
  9. PLATELETS [Concomitant]
     Indication: THROMBOCYTOPENIA
     Dosage: UNSELECTED RANDOM AND HLA-MATCHED  PLTS, MULTIPLE TRANSFUSIONS
     Route: 042
  10. CYCLOPHOSPHAMIDE [Concomitant]
     Indication: BONE MARROW CONDITIONING REGIMEN

REACTIONS (11)
  - ANTI-PLATELET ANTIBODY POSITIVE [None]
  - AUTOIMMUNE THROMBOCYTOPENIA [None]
  - CYSTITIS HAEMORRHAGIC [None]
  - ECCHYMOSIS [None]
  - FUNGAL INFECTION [None]
  - HAEMORRHAGE [None]
  - PETECHIAE [None]
  - RECTAL HAEMORRHAGE [None]
  - REFRACTORINESS TO PLATELET TRANSFUSION [None]
  - RESPIRATORY FAILURE [None]
  - THROMBOCYTOPENIA [None]
